FAERS Safety Report 14142608 (Version 3)
Quarter: 2017Q4

REPORT INFORMATION
  Report Type: Spontaneous
  Country: US (occurrence: US)
  Receive Date: 20171030
  Receipt Date: 20171122
  Transmission Date: 20180321
  Serious: No
  Sender: FDA-Public Use
  Company Number: US-ASTRAZENECA-2017SF08624

PATIENT
  Age: 1140 Month
  Sex: Female
  Weight: 44.5 kg

DRUGS (7)
  1. ALBUTEROL INHALER [Concomitant]
     Active Substance: ALBUTEROL
     Indication: DYSPNOEA
  2. SYMBICORT [Suspect]
     Active Substance: BUDESONIDE\FORMOTEROL FUMARATE DIHYDRATE
     Indication: CHRONIC OBSTRUCTIVE PULMONARY DISEASE
     Dosage: UNKNOWN UNKNOWN
     Route: 055
  3. PROAIR HFA [Concomitant]
     Active Substance: ALBUTEROL SULFATE
     Indication: DYSPNOEA
     Route: 055
  4. COMBIVENT [Concomitant]
     Active Substance: ALBUTEROL SULFATE\IPRATROPIUM BROMIDE
     Indication: DYSPNOEA
     Route: 055
  5. SYMBICORT [Suspect]
     Active Substance: BUDESONIDE\FORMOTEROL FUMARATE DIHYDRATE
     Indication: CHRONIC OBSTRUCTIVE PULMONARY DISEASE
     Dosage: 160/4.5 MCG TWO INHALATIONS TWICE A DAY  UNKNOWN
     Route: 055
     Dates: start: 20171019
  6. SYMBICORT [Suspect]
     Active Substance: BUDESONIDE\FORMOTEROL FUMARATE DIHYDRATE
     Indication: DYSPNOEA
     Dosage: 160/4.5 MCG TWO INHALATIONS TWICE A DAY  UNKNOWN
     Route: 055
     Dates: start: 20171019
  7. SYMBICORT [Suspect]
     Active Substance: BUDESONIDE\FORMOTEROL FUMARATE DIHYDRATE
     Indication: DYSPNOEA
     Dosage: UNKNOWN UNKNOWN
     Route: 055

REACTIONS (11)
  - Face oedema [Not Recovered/Not Resolved]
  - Memory impairment [Not Recovered/Not Resolved]
  - Lip pain [Not Recovered/Not Resolved]
  - Feeling abnormal [Unknown]
  - Dyspnoea [Not Recovered/Not Resolved]
  - Lip pain [Not Recovered/Not Resolved]
  - Oral herpes [Unknown]
  - Joint swelling [Recovered/Resolved]
  - Lip swelling [Not Recovered/Not Resolved]
  - Scab [Not Recovered/Not Resolved]
  - Lip injury [Recovered/Resolved]

NARRATIVE: CASE EVENT DATE: 201710
